FAERS Safety Report 6458520-4 (Version None)
Quarter: 2009Q4

REPORT INFORMATION
  Report Type: 
  Country: None (occurrence: None)
  Receive Date: 20091126
  Receipt Date: 20091119
  Transmission Date: 20100525
  Serious: Yes (Other)
  Sender: FDA-Public Use
  Company Number: US-BIOGENIDEC-2009BI035613

PATIENT
  Sex: Female

DRUGS (4)
  1. AVONEX [Suspect]
     Indication: MULTIPLE SCLEROSIS
     Route: 030
     Dates: start: 20020918, end: 20040101
  2. CHEMOTHERAPY [Concomitant]
     Indication: MULTIPLE SCLEROSIS
  3. STEROIDS [Concomitant]
     Indication: MULTIPLE SCLEROSIS
     Route: 042
  4. NOVANTRONE [Concomitant]

REACTIONS (3)
  - COORDINATION ABNORMAL [None]
  - DRUG INEFFECTIVE [None]
  - HEART INJURY [None]
